FAERS Safety Report 6281316-3 (Version None)
Quarter: 2009Q3

REPORT INFORMATION
  Report Type: 
  Country: None (occurrence: None)
  Receive Date: 20090724
  Receipt Date: 20090616
  Transmission Date: 20100115
  Serious: Yes (Hospitalization)
  Sender: FDA-Public Use
  Company Number: A0781106A

PATIENT
  Age: 33 Year
  Sex: Female

DRUGS (3)
  1. AVANDIA [Suspect]
     Dosage: 8MG TWICE PER DAY
     Route: 048
  2. AVANDAMET [Suspect]
     Route: 065
  3. AVANDARYL [Suspect]
     Route: 065

REACTIONS (1)
  - CARDIAC FAILURE CONGESTIVE [None]
